FAERS Safety Report 4829942-X (Version None)
Quarter: 2005Q4

REPORT INFORMATION
  Report Type: 
  Country: None (occurrence: None)
  Receive Date: 20051115
  Receipt Date: 20051115
  Transmission Date: 20060501
  Serious: Yes (Hospitalization)
  Sender: FDA-Public Use
  Company Number: None

PATIENT
  Age: 49 Year
  Sex: Male
  Weight: 81.1939 kg

DRUGS (11)
  1. LISINOPRIL [Suspect]
     Indication: DIABETES MELLITUS
     Dosage: 1 TABLET PO QDAILY
     Route: 048
     Dates: start: 20050501, end: 20050801
  2. LISINOPRIL [Suspect]
     Indication: HYPERTENSION
     Dosage: 1 TABLET PO QDAILY
     Route: 048
     Dates: start: 20050501, end: 20050801
  3. LOSARTAN POTASSIUM [Suspect]
     Indication: DIABETES MELLITUS
     Dosage: I TABLET PO QDAILY
     Route: 048
     Dates: start: 20050501, end: 20050801
  4. LOSARTAN POTASSIUM [Suspect]
     Indication: HYPERTENSION
     Dosage: I TABLET PO QDAILY
     Route: 048
     Dates: start: 20050501, end: 20050801
  5. ASPIRIN [Concomitant]
  6. METOPROLOL [Concomitant]
  7. SIMVASTATIN [Concomitant]
  8. HYDROCHLOROTHIAZIDE [Concomitant]
  9. INSULIN GLARGINE [Concomitant]
  10. REGULAR INSULIN [Concomitant]
  11. CLONIDINE [Concomitant]

REACTIONS (3)
  - BLOOD GLUCOSE INCREASED [None]
  - BLOOD POTASSIUM INCREASED [None]
  - BLOOD PRESSURE INCREASED [None]
